FAERS Safety Report 18119756 (Version 1)
Quarter: 2020Q3

REPORT INFORMATION
  Report Type: Spontaneous
  Country: US (occurrence: US)
  Receive Date: 20200806
  Receipt Date: 20200806
  Transmission Date: 20201103
  Serious: Yes (Disabling, Other)
  Sender: FDA-Public Use
  Company Number: US-PURDUE-USA-2020-0160451

PATIENT
  Sex: Male

DRUGS (13)
  1. NORCO [Suspect]
     Active Substance: ACETAMINOPHEN\HYDROCODONE BITARTRATE
     Indication: BACK INJURY
     Dosage: 335 MG, QID
     Route: 048
  2. SENOKOT [Suspect]
     Active Substance: SENNOSIDES
     Indication: PRODUCT USED FOR UNKNOWN INDICATION
     Dosage: UNKNOWN
     Route: 065
  3. FENTANYL. [Suspect]
     Active Substance: FENTANYL
     Indication: BACK PAIN
     Dosage: 50 MCG/HR, UNK
     Route: 062
  4. HUMALOG [Concomitant]
     Active Substance: INSULIN LISPRO
     Indication: PRODUCT USED FOR UNKNOWN INDICATION
     Dosage: UNKNOWN
     Route: 065
  5. ZOLPIDEM TARTRATE. [Concomitant]
     Active Substance: ZOLPIDEM TARTRATE
     Indication: PRODUCT USED FOR UNKNOWN INDICATION
     Dosage: 12.5 MG, UNK
     Route: 048
  6. HYDROCODONE BITARTRATE (SIMILAR TO NDA 206627) [Suspect]
     Active Substance: HYDROCODONE BITARTRATE
     Indication: BACK INJURY
     Dosage: UNKNOWN
     Route: 048
  7. LYRICA [Concomitant]
     Active Substance: PREGABALIN
     Indication: PRODUCT USED FOR UNKNOWN INDICATION
     Dosage: UNKNOWN
     Route: 048
  8. CYMBALTA [Concomitant]
     Active Substance: DULOXETINE HYDROCHLORIDE
     Indication: PRODUCT USED FOR UNKNOWN INDICATION
     Dosage: UNKNOWN
     Route: 065
  9. VOLTAREN [Concomitant]
     Active Substance: DICLOFENAC SODIUM
     Indication: PRODUCT USED FOR UNKNOWN INDICATION
     Dosage: UNKNOWN
     Route: 061
  10. MS CONTIN [Suspect]
     Active Substance: MORPHINE SULFATE
     Indication: BACK INJURY
     Dosage: UNKNOWN
     Route: 048
  11. HYDROCODONE BITARTRATE AND ACETAMINOPHEN [Suspect]
     Active Substance: ACETAMINOPHEN\HYDROCODONE BITARTRATE
     Indication: BACK INJURY
     Dosage: 335 MG, UNK
     Route: 048
  12. LORAZEPAM. [Concomitant]
     Active Substance: LORAZEPAM
     Indication: PRODUCT USED FOR UNKNOWN INDICATION
     Dosage: 1 MG, UNK
     Route: 048
  13. OXYCONTIN [Suspect]
     Active Substance: OXYCODONE HYDROCHLORIDE
     Indication: BACK INJURY
     Dosage: UNKNOWN
     Route: 048

REACTIONS (23)
  - Intervertebral disc degeneration [Unknown]
  - Back pain [Unknown]
  - Constipation [Unknown]
  - Abdominal pain upper [Unknown]
  - Lumbosacral radiculopathy [Unknown]
  - Tenderness [Unknown]
  - Detoxification [Unknown]
  - Depression [Unknown]
  - Mood swings [Unknown]
  - Mental impairment [Unknown]
  - Weight increased [Unknown]
  - Pain in extremity [Unknown]
  - Hypoaesthesia [Unknown]
  - Drug dependence [Unknown]
  - Substance use disorder [Unknown]
  - Disability [Unknown]
  - Memory impairment [Unknown]
  - Cognitive disorder [Unknown]
  - Intervertebral disc disorder [Unknown]
  - Chronic idiopathic pain syndrome [Unknown]
  - Sciatica [Unknown]
  - Learning disability [Unknown]
  - Paraesthesia [Unknown]
